FAERS Safety Report 8240383-8 (Version None)
Quarter: 2012Q1

REPORT INFORMATION
  Report Type: 
  Country: None (occurrence: None)
  Receive Date: 20120328
  Receipt Date: 20120323
  Transmission Date: 20120608
  Serious: Yes (Other)
  Sender: FDA-Public Use
  Company Number: CA-PFIZER INC-2012076071

PATIENT
  Age: 72 Year
  Sex: Female
  Weight: 74.83 kg

DRUGS (4)
  1. NORVASC [Suspect]
     Indication: HYPERTENSION
     Dosage: 2.5 MG, 1X/DAY
     Route: 048
     Dates: start: 20020101, end: 20080101
  2. NORVASC [Suspect]
     Dosage: 5 MG, 1X/DAY
     Dates: start: 20080101, end: 20080101
  3. ATENOLOL [Concomitant]
     Indication: HYPERTENSION
     Dosage: UNK
  4. NORVASC [Suspect]
     Dosage: 10 MG, 1X/DAY
     Dates: start: 20080101

REACTIONS (3)
  - JOINT SWELLING [None]
  - TYPE 2 DIABETES MELLITUS [None]
  - OEDEMA PERIPHERAL [None]
